FAERS Safety Report 6087231-2 (Version None)
Quarter: 2009Q1

REPORT INFORMATION
  Report Type: 
  Country: None (occurrence: None)
  Receive Date: 20090219
  Receipt Date: 20090219
  Transmission Date: 20090719
  Serious: No
  Sender: FDA-Public Use
  Company Number: None

PATIENT
  Age: 22 Year
  Sex: Male
  Weight: 83.9154 kg

DRUGS (2)
  1. BENZTROPINE MESYLATE [Suspect]
     Dosage: 1 MG BID PO
     Route: 048
  2. BENZTROPINE MESYLATE [Concomitant]

REACTIONS (1)
  - VASCULITIC RASH [None]
